FAERS Safety Report 5498076-6 (Version None)
Quarter: 2007Q4

REPORT INFORMATION
  Report Type: 
  Country: None (occurrence: None)
  Receive Date: 20071018
  Receipt Date: 20070725
  Transmission Date: 20080405
  Serious: Yes (Disabling, Other)
  Sender: FDA-Public Use
  Company Number: 2007061763

PATIENT
  Age: 54 Year
  Sex: Female
  Weight: 81.81 kg

DRUGS (8)
  1. NEURONTIN [Suspect]
     Indication: DIABETIC NEUROPATHY
  2. LYRICA [Suspect]
     Indication: DIABETIC NEUROPATHY
     Dosage: 300 MG (100 MG, 3 IN 1 D)
     Dates: start: 20070101
  3. SYNTHROID [Concomitant]
  4. XANAX [Concomitant]
  5. TRAZODONE HCL [Concomitant]
  6. LITHIUM CARBONATE [Concomitant]
  7. MAGNESIUM OXIDE (MAGNESIUM OXIDE) [Concomitant]
  8. SEROQUEL [Concomitant]

REACTIONS (4)
  - ANKLE FRACTURE [None]
  - BLOOD CAFFEINE INCREASED [None]
  - NEUROPATHY PERIPHERAL [None]
  - SOMNOLENCE [None]
